FAERS Safety Report 25632072 (Version 1)
Quarter: 2025Q3

REPORT INFORMATION
  Report Type: Spontaneous
  Country: US (occurrence: None)
  Receive Date: 20250731
  Receipt Date: 20250731
  Transmission Date: 20251020
  Serious: Yes (Hospitalization)
  Sender: FDA-CTU
  Company Number: None

PATIENT
  Sex: Female

DRUGS (11)
  1. XOLAIR PFS [Suspect]
     Active Substance: OMALIZUMAB
     Indication: Idiopathic urticaria
     Dosage: INJECT ONE SYRINGE (300 MG) UNDER THE SKIN (SUBCUTANEOUS INJECTION) EVERY FOUR WEEKS
     Route: 058
     Dates: start: 20240904
  2. ALBUTEROL AER HFA [Concomitant]
  3. AZITHROMYCIN [Concomitant]
     Active Substance: AZITHROMYCIN
  4. CYCLOBENZAPRTAB10MG [Concomitant]
  5. DULOXETINE CAP 30MG [Concomitant]
  6. FLUCONAZOLE TAB 100MG [Concomitant]
  7. FLUNISOLIDE SPR 0.025% [Concomitant]
  8. HYDROXYZ HCL TAB 25MG [Concomitant]
  9. IBUPROFEN [Concomitant]
     Active Substance: IBUPROFEN
  10. IPRATROPIUM SPR 0.06% [Concomitant]
  11. LEVOCETIRIZI TAB 5MG [Concomitant]

REACTIONS (2)
  - Impaired quality of life [None]
  - Asthma [None]
